FAERS Safety Report 6026640-4 (Version None)
Quarter: 2008Q4

REPORT INFORMATION
  Report Type: 
  Country: None (occurrence: None)
  Receive Date: 20081231
  Receipt Date: 20081216
  Transmission Date: 20090506
  Serious: Yes (Hospitalization, Other)
  Sender: FDA-Public Use
  Company Number: KV200801200

PATIENT
  Age: 86 Year
  Sex: Female

DRUGS (15)
  1. ISOSORBIDE MONONITRATE [Suspect]
     Indication: HEART RATE IRREGULAR
     Dosage: 30 MG, QD, ORAL
     Route: 048
     Dates: start: 20060101
  2. ASPIRIN [Concomitant]
  3. NITROQUIK [Concomitant]
  4. REGLAN /00041901/ (METOCLOPRAMIDE) [Concomitant]
  5. LEVAQUIN [Concomitant]
  6. TOPROL-XL [Concomitant]
  7. LASIX [Concomitant]
  8. POTASSIUM (POTASSIUM) [Concomitant]
  9. PROZAC /00724401/ (FLUOXETINE) [Concomitant]
  10. ZANTAC /00550802/ (RANITIDINE HYDROCHLORIDE) [Concomitant]
  11. NEXIUM [Concomitant]
  12. LIPITOR [Concomitant]
  13. COREG [Concomitant]
  14. LISINOPRIL [Concomitant]
  15. ARTHROTEC /00372302/ (DICLOFENAC SODIUM) [Concomitant]

REACTIONS (2)
  - LOSS OF CONSCIOUSNESS [None]
  - PRODUCT QUALITY ISSUE [None]
